FAERS Safety Report 14595884 (Version 1)
Quarter: 2018Q1

REPORT INFORMATION
  Report Type: Spontaneous
  Country: FR (occurrence: FR)
  Receive Date: 20180303
  Receipt Date: 20180303
  Transmission Date: 20180509
  Serious: Yes (Hospitalization)
  Sender: FDA-Public Use
  Company Number: FR-SUN PHARMACEUTICAL INDUSTRIES LTD-2018RR-164972

PATIENT
  Age: 19 Year
  Sex: Female

DRUGS (5)
  1. PARACETAMOL [Suspect]
     Active Substance: ACETAMINOPHEN
     Indication: PAIN
     Dosage: 4 A 6 G/J
     Route: 048
     Dates: start: 20170629, end: 20170707
  2. AMOXICILLIN. [Suspect]
     Active Substance: AMOXICILLIN
     Indication: PYELONEPHRITIS
     Dosage: 3 G, DAILY
     Route: 042
     Dates: start: 20170629, end: 20170705
  3. AMIKACINE [Suspect]
     Active Substance: AMIKACIN
     Indication: PYELONEPHRITIS
     Dosage: 2 G, UNK
     Route: 042
     Dates: start: 20170705, end: 20170705
  4. PROFENID [Suspect]
     Active Substance: KETOPROFEN
     Indication: PRODUCT USED FOR UNKNOWN INDICATION
     Dosage: NON DETERMINEE
     Route: 048
     Dates: start: 20170705, end: 20170705
  5. ROCEPHINE [Suspect]
     Active Substance: CEFTRIAXONE SODIUM
     Indication: PYELONEPHRITIS
     Dosage: 2 G, DAILY
     Route: 042
     Dates: start: 20170705, end: 20170707

REACTIONS (2)
  - Hepatitis [Recovered/Resolved]
  - Nephritis [Recovered/Resolved]

NARRATIVE: CASE EVENT DATE: 20170629
